FAERS Safety Report 12130368 (Version 2)
Quarter: 2016Q2

REPORT INFORMATION
  Report Type: Report from Study
  Country: BR (occurrence: BR)
  Receive Date: 20160301
  Receipt Date: 20160531
  Transmission Date: 20160815
  Serious: Yes (Life-Threatening, Hospitalization)
  Sender: FDA-Public Use
  Company Number: PHHY2016BR026223

PATIENT
  Sex: Male
  Weight: 72 kg

DRUGS (2)
  1. DIOVAN [Suspect]
     Active Substance: VALSARTAN
     Dosage: 1 DF, QD
     Route: 048
  2. DIOVAN [Suspect]
     Active Substance: VALSARTAN
     Indication: HYPERTENSION
     Dosage: 1 DF, QD
     Route: 048

REACTIONS (4)
  - Malaise [Unknown]
  - Gallbladder disorder [Unknown]
  - Pancreatitis [Recovered/Resolved]
  - Abdominal pain upper [Unknown]
